FAERS Safety Report 4934288-5 (Version None)
Quarter: 2006Q1

REPORT INFORMATION
  Report Type: 
  Country: None (occurrence: None)
  Receive Date: 20060307
  Receipt Date: 20060213
  Transmission Date: 20060701
  Serious: Yes (Other)
  Sender: FDA-Public Use
  Company Number: US-ROCHE-436234

PATIENT
  Sex: Female

DRUGS (8)
  1. PEGASYS [Suspect]
     Route: 065
     Dates: start: 20050525, end: 20050713
  2. PEG-INTRON [Suspect]
     Dosage: REPORTED AS INJECTABLE POWDER.
     Route: 058
     Dates: start: 20050720, end: 20051115
  3. REBETOL [Suspect]
     Route: 048
     Dates: start: 20050720, end: 20051122
  4. CLARITIN [Concomitant]
     Indication: ECZEMA
     Dosage: FOR ECZEMA AND ATOPY.
     Route: 048
     Dates: start: 20050803
  5. LENDORMIN [Concomitant]
     Route: 048
     Dates: start: 20050525
  6. LOXONIN [Concomitant]
     Indication: CONSTIPATION
     Route: 048
     Dates: start: 20050525
  7. MAGNESIUM OXIDE [Concomitant]
     Indication: CONSTIPATION
     Route: 048
     Dates: start: 20050525
  8. DEPAS [Concomitant]
     Route: 048
     Dates: start: 20050525

REACTIONS (2)
  - CARDIAC FAILURE [None]
  - CARDIOMEGALY [None]
